FAERS Safety Report 5299843-4 (Version None)
Quarter: 2007Q2

REPORT INFORMATION
  Report Type: 
  Country: None (occurrence: None)
  Receive Date: 20070417
  Receipt Date: 20070405
  Transmission Date: 20071010
  Serious: Yes (Other)
  Sender: FDA-Public Use
  Company Number: FR-PFIZER INC-2007028492

PATIENT
  Sex: Female

DRUGS (4)
  1. LYRICA [Suspect]
     Indication: PAIN IN EXTREMITY
  2. ALLOPURINOL [Concomitant]
  3. BEFIZAL [Concomitant]
  4. FORTZAAR [Concomitant]

REACTIONS (8)
  - BURNING SENSATION [None]
  - DRUG INEFFECTIVE [None]
  - DYSPHEMIA [None]
  - ERYTHEMA [None]
  - FALL [None]
  - PRURITUS [None]
  - SKIN EXFOLIATION [None]
  - SOMNOLENCE [None]
